FAERS Safety Report 17318584 (Version 2)
Quarter: 2020Q1

REPORT INFORMATION
  Report Type: Report from Study
  Country: US (occurrence: US)
  Receive Date: 20200124
  Receipt Date: 20200311
  Transmission Date: 20200409
  Serious: Yes (Hospitalization, Other)
  Sender: FDA-Public Use
  Company Number: US-VERTEX PHARMACEUTICALS-2020-000608

PATIENT
  Age: 19 Year
  Sex: Male

DRUGS (1)
  1. TRIKAFTA [Suspect]
     Active Substance: ELEXACAFTOR\IVACAFTOR\TEZACAFTOR
     Indication: CYSTIC FIBROSIS
     Dosage: 100 MG ELEXACAFTOR/50 MG TEZACAFTOR/ 75 MG IVACAFTOR AND 150 MG IVACAFTOR, FREQUENCY UNKNOWN
     Route: 048
     Dates: start: 20200116

REACTIONS (3)
  - Hospice care [Not Recovered/Not Resolved]
  - Nausea [Unknown]
  - Hospitalisation [Not Recovered/Not Resolved]

NARRATIVE: CASE EVENT DATE: 20200116
